FAERS Safety Report 15320565 (Version 1)
Quarter: 2018Q3

REPORT INFORMATION
  Report Type: Spontaneous
  Country: US (occurrence: US)
  Receive Date: 20180827
  Receipt Date: 20180827
  Transmission Date: 20181010
  Serious: Yes (Hospitalization, Other)
  Sender: FDA-Public Use
  Company Number: US-GLAXOSMITHKLINE-US2018GSK150680

PATIENT
  Age: 72 Year
  Sex: Female

DRUGS (1)
  1. ADVAIR HFA [Suspect]
     Active Substance: FLUTICASONE PROPIONATE\SALMETEROL XINAFOATE
     Indication: PRODUCT USED FOR UNKNOWN INDICATION
     Dosage: UNK

REACTIONS (13)
  - Overweight [Unknown]
  - General physical health deterioration [Unknown]
  - Cardiac failure congestive [Unknown]
  - Carbon dioxide increased [Unknown]
  - Dyspnoea [Unknown]
  - Oxygen saturation decreased [Unknown]
  - Hypertension [Unknown]
  - Gait disturbance [Unknown]
  - Treatment noncompliance [Unknown]
  - Intentional product misuse [Unknown]
  - Drug dose omission [Unknown]
  - Intensive care [Unknown]
  - Oxygen therapy [Unknown]

NARRATIVE: CASE EVENT DATE: 201808
